FAERS Safety Report 5103521-1 (Version None)
Quarter: 2006Q3

REPORT INFORMATION
  Report Type: 
  Country: None (occurrence: None)
  Receive Date: 20060908
  Receipt Date: 20060823
  Transmission Date: 20061208
  Serious: Yes (Other)
  Sender: FDA-Public Use
  Company Number: 8015869

PATIENT
  Age: 18 Year
  Sex: Female

DRUGS (7)
  1. METADATE CD [Suspect]
     Indication: ATTENTION DEFICIT/HYPERACTIVITY DISORDER
     Dosage: 20 MG; PO
     Route: 048
     Dates: start: 20010708, end: 20010921
  2. METADATE CD [Suspect]
     Indication: ATTENTION DEFICIT/HYPERACTIVITY DISORDER
     Dosage: 40 MG, PO
     Route: 048
     Dates: start: 20010921, end: 20030218
  3. METADATE CD [Suspect]
     Indication: ATTENTION DEFICIT/HYPERACTIVITY DISORDER
     Dosage: 60 MG PO
     Route: 048
     Dates: start: 20030218, end: 20041001
  4. ORAL CONTRACEPTION [Concomitant]
  5. STRATTERA [Concomitant]
  6. STRATTERA [Concomitant]
  7. STRATTERA 80 MG [Concomitant]

REACTIONS (8)
  - ANOREXIA [None]
  - ATRIOVENTRICULAR BLOCK THIRD DEGREE [None]
  - CARDIAC MURMUR [None]
  - CHEST DISCOMFORT [None]
  - MOOD ALTERED [None]
  - NAUSEA [None]
  - PANIC ATTACK [None]
  - WEIGHT DECREASED [None]
